FAERS Safety Report 20259393 (Version 1)
Quarter: 2021Q4

REPORT INFORMATION
  Report Type: Spontaneous
  Country: US (occurrence: None)
  Receive Date: 20211230
  Receipt Date: 20211230
  Transmission Date: 20220303
  Serious: Yes (Other)
  Sender: FDA-Public Use
  Company Number: None

PATIENT
  Age: 30 Year
  Sex: Female
  Weight: 65.8 kg

DRUGS (1)
  1. BAMLANIVIMAB\ETESEVIMAB [Suspect]
     Active Substance: BAMLANIVIMAB\ETESEVIMAB
     Indication: COVID-19 treatment
     Dosage: OTHER FREQUENCY : ONCE;?
     Route: 042

REACTIONS (7)
  - Infusion related reaction [None]
  - Palpitations [None]
  - Throat tightness [None]
  - Flushing [None]
  - Lip swelling [None]
  - Paraesthesia oral [None]
  - Fatigue [None]

NARRATIVE: CASE EVENT DATE: 20211230
